FAERS Safety Report 9417458 (Version 1)
Quarter: 2013Q3

REPORT INFORMATION
  Report Type: Spontaneous
  Country: US (occurrence: US)
  Receive Date: 20130724
  Receipt Date: 20130724
  Transmission Date: 20140515
  Serious: No
  Sender: FDA-Public Use
  Company Number: US-BRISTOL-MYERS SQUIBB COMPANY-18778266

PATIENT
  Age: 71 Year
  Sex: Male
  Weight: 111.11 kg

DRUGS (5)
  1. ELIQUIS [Suspect]
     Indication: ATRIAL FIBRILLATION
     Dates: start: 2013
  2. VASOTEC [Concomitant]
  3. TOPROL XL [Concomitant]
  4. DYAZIDE [Concomitant]
  5. PROBENECID [Concomitant]

REACTIONS (1)
  - Eye disorder [Unknown]
